FAERS Safety Report 8284311-8 (Version None)
Quarter: 2012Q2

REPORT INFORMATION
  Report Type: 
  Country: None (occurrence: None)
  Receive Date: 20120413
  Receipt Date: 20120207
  Transmission Date: 20120825
  Serious: No
  Sender: FDA-Public Use
  Company Number: US-ASTRAZENECA-2011SE40154

PATIENT
  Age: 62 Year
  Sex: Female

DRUGS (7)
  1. NEXIUM [Suspect]
     Dosage: TAKE IT EVERY TWO TO THREE DAYS INSTEAD OF HOW IT WAS PRESCRIBED
     Route: 048
     Dates: start: 20070701
  2. CRESTOR [Suspect]
     Route: 048
  3. AMOXICILLIN TRIHYDRATE [Concomitant]
  4. ACIPHEX [Concomitant]
  5. BIAXIN [Concomitant]
  6. ZOCOR [Concomitant]
  7. NEXIUM [Suspect]
     Route: 048
     Dates: start: 20070701

REACTIONS (15)
  - GASTROINTESTINAL DISORDER [None]
  - BONE DISORDER [None]
  - MALAISE [None]
  - STRESS [None]
  - CHEST PAIN [None]
  - HELICOBACTER INFECTION [None]
  - BLOOD MAGNESIUM ABNORMAL [None]
  - GASTRIC ULCER [None]
  - DIARRHOEA [None]
  - DYSPEPSIA [None]
  - HEADACHE [None]
  - ABDOMINAL PAIN [None]
  - BLOOD GLUCOSE DECREASED [None]
  - GASTRITIS [None]
  - INCORRECT DOSE ADMINISTERED [None]
